FAERS Safety Report 5252051-5 (Version None)
Quarter: 2007Q1

REPORT INFORMATION
  Report Type: 
  Country: None (occurrence: None)
  Receive Date: 20070223
  Receipt Date: 20070208
  Transmission Date: 20070707
  Serious: Yes (Hospitalization, Other)
  Sender: FDA-Public Use
  Company Number: L07-USA-00671-01

PATIENT
  Sex: Female
  Weight: 3.033 kg

DRUGS (3)
  1. ESCITALOPRAM [Suspect]
     Dosage: 20 MG QD BF
  2. ESCITALOPRAM [Suspect]
     Dosage: 20 MG QD TRANSPLACENTAL
     Route: 064
  3. PRENATAL VITAMINS [Concomitant]

REACTIONS (12)
  - C-REACTIVE PROTEIN INCREASED [None]
  - CAESAREAN SECTION [None]
  - DRUG EXPOSURE DURING PREGNANCY [None]
  - DRUG EXPOSURE VIA BREAST MILK [None]
  - FOETAL DISORDER [None]
  - HAEMATOCHEZIA [None]
  - LETHARGY [None]
  - LUNG DISORDER [None]
  - NECROTISING COLITIS [None]
  - NEONATAL RESPIRATORY DISTRESS SYNDROME [None]
  - ORAL INTAKE REDUCED [None]
  - PNEUMATOSIS INTESTINALIS [None]
